FAERS Safety Report 11989561 (Version 3)
Quarter: 2016Q2

REPORT INFORMATION
  Report Type: Spontaneous
  Country: US (occurrence: US)
  Receive Date: 20160202
  Receipt Date: 20160629
  Transmission Date: 20160815
  Serious: Yes (Death, Hospitalization, Other)
  Sender: FDA-Public Use
  Company Number: US-009507513-1602USA001345

PATIENT
  Sex: Male
  Weight: 122.45 kg

DRUGS (5)
  1. BYETTA [Suspect]
     Active Substance: EXENATIDE
     Dosage: 5 MICROGRAM, QD
     Route: 065
     Dates: start: 20080616, end: 20081014
  2. BYETTA [Suspect]
     Active Substance: EXENATIDE
     Indication: TYPE 2 DIABETES MELLITUS
     Dosage: 10 MICROGRAM, QD
     Route: 065
     Dates: start: 20070114, end: 20091208
  3. JANUVIA [Suspect]
     Active Substance: SITAGLIPTIN PHOSPHATE
     Indication: TYPE 2 DIABETES MELLITUS
     Dosage: 100 MG, QD
     Route: 048
     Dates: start: 20130112, end: 20130530
  4. BYETTA [Suspect]
     Active Substance: EXENATIDE
     Dosage: 10 MICROGRAM, QD
     Route: 065
     Dates: start: 20100317, end: 20121002
  5. BYETTA [Suspect]
     Active Substance: EXENATIDE
     Dosage: 100 MG, QD
     Route: 065
     Dates: start: 20130112, end: 20130211

REACTIONS (12)
  - Atrial fibrillation [Unknown]
  - Adenocarcinoma pancreas [Fatal]
  - Tachycardia [Recovered/Resolved]
  - Hip arthroplasty [Unknown]
  - Infection [Unknown]
  - Sinus node dysfunction [Unknown]
  - Hyperlipidaemia [Unknown]
  - Hypertension [Unknown]
  - Proteinuria [Unknown]
  - Metastases to liver [Unknown]
  - Arthritis [Unknown]
  - Pulmonary mass [Unknown]

NARRATIVE: CASE EVENT DATE: 201305
